FAERS Safety Report 9437216 (Version 1)
Quarter: 2013Q3

REPORT INFORMATION
  Report Type: Spontaneous
  Country: US (occurrence: US)
  Receive Date: 20130802
  Receipt Date: 20130802
  Transmission Date: 20140515
  Serious: Yes (Hospitalization)
  Sender: FDA-Public Use
  Company Number: PHEH2013US011456

PATIENT
  Age: 57 Year
  Sex: Male

DRUGS (7)
  1. TASIGNA [Suspect]
     Indication: CHRONIC MYELOID LEUKAEMIA
     Dosage: 300 MG, UNK
     Route: 048
     Dates: start: 20130424
  2. TASIGNA [Suspect]
     Dosage: 300 MG, BID
     Route: 048
     Dates: start: 20130501
  3. TASIGNA [Suspect]
     Dosage: 150 MG, BID
     Route: 048
     Dates: start: 20130605
  4. IBUPROFEN [Concomitant]
     Dosage: 200 MG, UNK
  5. ZOLPIDEM [Concomitant]
     Indication: INSOMNIA
     Dosage: 10 MG, UNK
  6. SERTRALINE [Concomitant]
     Indication: DEPRESSION
  7. PANTOPRAZOLE [Concomitant]
     Dosage: 40 MG, QD

REACTIONS (4)
  - Rib fracture [Unknown]
  - Pleural effusion [Unknown]
  - Dyspnoea [Unknown]
  - Pleuritic pain [Recovered/Resolved]
